FAERS Safety Report 20349824 (Version 1)
Quarter: 2022Q1

REPORT INFORMATION
  Report Type: Spontaneous
  Country: US (occurrence: None)
  Receive Date: 20220118
  Receipt Date: 20220118
  Transmission Date: 20220423
  Serious: No
  Sender: FDA-Public Use
  Company Number: None

PATIENT
  Sex: Male
  Weight: 78.93 kg

DRUGS (13)
  1. INLYTA [Suspect]
     Active Substance: AXITINIB
     Indication: Metastasis
     Dosage: FREQUENCY : DAILY;?
     Route: 048
     Dates: start: 20210211
  2. CITALOPRAM [Concomitant]
     Active Substance: CITALOPRAM HYDROBROMIDE
  3. CLONAZEPAM [Concomitant]
     Active Substance: CLONAZEPAM
  4. LEVOTHYROXINE [Concomitant]
     Active Substance: LEVOTHYROXINE
  5. SIMVASTATIN [Concomitant]
     Active Substance: SIMVASTATIN
  6. VARVEDILOL [Concomitant]
  7. VITAMIN D3 [Concomitant]
     Active Substance: CHOLECALCIFEROL
  8. CLINDAMYCIN [Concomitant]
     Active Substance: CLINDAMYCIN
  9. LOSARTAN [Concomitant]
     Active Substance: LOSARTAN
  10. HYDRALAZINE [Concomitant]
     Active Substance: HYDRALAZINE HYDROCHLORIDE
  11. CHLORTHALIDONE [Concomitant]
     Active Substance: CHLORTHALIDONE
  12. NORCO [Concomitant]
     Active Substance: ACETAMINOPHEN\HYDROCODONE BITARTRATE
  13. LYNPARZA [Concomitant]
     Active Substance: OLAPARIB

REACTIONS (2)
  - Neoplasm [None]
  - Renal disorder [None]
